FAERS Safety Report 17464304 (Version 3)
Quarter: 2020Q2

REPORT INFORMATION
  Report Type: Report from Study
  Country: US (occurrence: US)
  Receive Date: 20200226
  Receipt Date: 20200417
  Transmission Date: 20200713
  Serious: No
  Sender: FDA-Public Use
  Company Number: NVSC2020US053186

PATIENT
  Age: 59 Year
  Sex: Female
  Weight: 65.77 kg

DRUGS (3)
  1. OXYTROL [Suspect]
     Active Substance: OXYBUTYNIN
     Indication: HYPERTONIC BLADDER
     Dosage: UNK
     Route: 065
  2. MAYZENT [Suspect]
     Active Substance: SIPONIMOD
     Dosage: 2 MG
     Route: 048
     Dates: start: 20200222
  3. MAYZENT [Suspect]
     Active Substance: SIPONIMOD
     Indication: MULTIPLE SCLEROSIS
     Dosage: 2 MG, QD
     Route: 048
     Dates: start: 20200213, end: 20200222

REACTIONS (7)
  - Heart rate decreased [Recovered/Resolved]
  - Headache [Recovered/Resolved]
  - Dysgraphia [Unknown]
  - Mobility decreased [Unknown]
  - Dry mouth [Unknown]
  - Movement disorder [Unknown]
  - Drug ineffective [Unknown]

NARRATIVE: CASE EVENT DATE: 20200220
